FAERS Safety Report 11605311 (Version 28)
Quarter: 2022Q1

REPORT INFORMATION
  Report Type: Report from Study
  Country: CA (occurrence: CA)
  Receive Date: 20151007
  Receipt Date: 20220309
  Transmission Date: 20220424
  Serious: Yes (Death, Hospitalization, Other)
  Sender: FDA-Public Use
  Company Number: PHHY2013CA075093

PATIENT
  Sex: Female

DRUGS (4)
  1. SANDOSTATIN LAR DEPOT [Suspect]
     Active Substance: OCTREOTIDE ACETATE
     Indication: Pancreatic neuroendocrine tumour
     Dosage: 30 MG, QMO (EVERY 4 WEEKS)
     Route: 030
     Dates: start: 20130318
  2. SANDOSTATIN LAR DEPOT [Suspect]
     Active Substance: OCTREOTIDE ACETATE
     Dosage: 40 MG, QMO (EVERY 4 WEEKS)
     Route: 030
     Dates: start: 20130318
  3. SANDOSTATIN LAR DEPOT [Suspect]
     Active Substance: OCTREOTIDE ACETATE
     Dosage: 30 MG, QMO (EVERY 4 WEEKS)
     Route: 030
  4. SANDOSTATIN LAR DEPOT [Suspect]
     Active Substance: OCTREOTIDE ACETATE
     Dosage: 40 MG, QMO (EVERY 4 WEEKS)
     Route: 030

REACTIONS (37)
  - Death [Fatal]
  - Metastases to liver [Unknown]
  - Hepatic lesion [Unknown]
  - Ovarian cyst [Recovering/Resolving]
  - Abdominal pain [Unknown]
  - Abdominal distension [Recovering/Resolving]
  - Arthralgia [Recovered/Resolved]
  - Joint warmth [Unknown]
  - Blood calcium increased [Unknown]
  - Pancreatic neuroendocrine tumour [Unknown]
  - Malignant neoplasm progression [Unknown]
  - Metastases to peritoneum [Unknown]
  - Depression [Recovering/Resolving]
  - Crying [Recovering/Resolving]
  - Palpitations [Recovered/Resolved]
  - Blood pressure increased [Unknown]
  - Respiratory rate increased [Unknown]
  - Gout [Unknown]
  - Pain in extremity [Recovered/Resolved]
  - Burning sensation [Unknown]
  - Peripheral swelling [Recovered/Resolved]
  - Blood iron decreased [Unknown]
  - Vitamin D decreased [Unknown]
  - Blood pressure systolic increased [Unknown]
  - Hypersomnia [Unknown]
  - Insomnia [Unknown]
  - Illness [Unknown]
  - Joint swelling [Unknown]
  - Dizziness postural [Unknown]
  - Fatigue [Unknown]
  - Flatulence [Unknown]
  - Constipation [Recovering/Resolving]
  - Dyspepsia [Unknown]
  - Heart rate increased [Unknown]
  - Diarrhoea [Recovering/Resolving]
  - Alopecia [Unknown]
  - Vomiting [Unknown]

NARRATIVE: CASE EVENT DATE: 20140101
